FAERS Safety Report 6546318-8 (Version None)
Quarter: 2010Q1

REPORT INFORMATION
  Report Type: 
  Country: None (occurrence: None)
  Receive Date: 20100122
  Receipt Date: 20100112
  Transmission Date: 20100710
  Serious: Yes (Hospitalization)
  Sender: FDA-Public Use
  Company Number: US-CELGENEUS-163-20785-10010693

PATIENT
  Sex: Male

DRUGS (4)
  1. THALOMID [Suspect]
     Indication: MULTIPLE MYELOMA
     Route: 048
     Dates: start: 20091201
  2. THALOMID [Suspect]
     Route: 048
     Dates: start: 20040201, end: 20060501
  3. THALOMID [Suspect]
     Route: 048
     Dates: start: 20061101, end: 20080901
  4. THALOMID [Suspect]
     Route: 048
     Dates: start: 20090601, end: 20091201

REACTIONS (1)
  - RENAL DISORDER [None]
